FAERS Safety Report 13421810 (Version 3)
Quarter: 2019Q1

REPORT INFORMATION
  Report Type: Spontaneous
  Country: US (occurrence: US)
  Receive Date: 20170410
  Receipt Date: 20190128
  Transmission Date: 20190417
  Serious: No
  Sender: FDA-Public Use
  Company Number: ALCN2017US002601

PATIENT
  Sex: Female

DRUGS (2)
  1. MURO 128 [Concomitant]
     Active Substance: SODIUM CHLORIDE
     Indication: PRODUCT USED FOR UNKNOWN INDICATION
     Route: 065
  2. SYSTANE GELDROPS [Suspect]
     Active Substance: POLYETHYLENE GLYCOL 400\PROPYLENE GLYCOL
     Indication: DRY EYE
     Dosage: 1 DF, PRN
     Route: 047
     Dates: end: 20170404

REACTIONS (5)
  - Eye swelling [Not Recovered/Not Resolved]
  - Eye irritation [Not Recovered/Not Resolved]
  - Hypersensitivity [Unknown]
  - Product quality issue [Unknown]
  - Ocular hyperaemia [Not Recovered/Not Resolved]
